FAERS Safety Report 25150167 (Version 1)
Quarter: 2025Q2

REPORT INFORMATION
  Report Type: Spontaneous
  Country: US (occurrence: US)
  Receive Date: 20250402
  Receipt Date: 20250402
  Transmission Date: 20250716
  Serious: No
  Sender: VANDA PHARMACEUTICALS
  Company Number: US-VANDA PHARMACEUTICALS, INC-2024PONUS001119

PATIENT
  Sex: Female

DRUGS (1)
  1. PONVORY [Suspect]
     Active Substance: PONESIMOD
     Indication: Multiple sclerosis
     Dosage: 20 MILLIGRAM, QD
     Route: 048

REACTIONS (10)
  - Constipation [Unknown]
  - Muscle spasms [Unknown]
  - Feeling abnormal [Unknown]
  - Disturbance in attention [Unknown]
  - Balance disorder [Unknown]
  - Vertigo [Unknown]
  - Nausea [Unknown]
  - Chest discomfort [Unknown]
  - Fatigue [Unknown]
  - Headache [Unknown]
